FAERS Safety Report 13332505 (Version 1)
Quarter: 2017Q1

REPORT INFORMATION
  Report Type: Spontaneous
  Country: US (occurrence: US)
  Receive Date: 20170314
  Receipt Date: 20170314
  Transmission Date: 20170428
  Serious: Yes (Life-Threatening)
  Sender: FDA-Public Use
  Company Number: None

PATIENT
  Age: 72 Year
  Sex: Female
  Weight: 63.6 kg

DRUGS (1)
  1. SULFAMETHOXAZOLE/TRIMETHOPRIM [Suspect]
     Active Substance: SULFAMETHOXAZOLE\TRIMETHOPRIM
     Indication: URINARY TRACT INFECTION
     Dates: start: 20170202, end: 20170220

REACTIONS (8)
  - Ecchymosis [None]
  - Oedema peripheral [None]
  - Muscle rigidity [None]
  - Mental status changes [None]
  - Rhonchi [None]
  - Breath sounds abnormal [None]
  - Pleural effusion [None]
  - Hyponatraemia [None]

NARRATIVE: CASE EVENT DATE: 20170220
